FAERS Safety Report 9291052 (Version 1)
Quarter: 2013Q2

REPORT INFORMATION
  Report Type: Spontaneous
  Country: US (occurrence: US)
  Receive Date: 20130515
  Receipt Date: 20130515
  Transmission Date: 20140414
  Serious: Yes (Death, Hospitalization, Other)
  Sender: FDA-Public Use
  Company Number: US-009507513-0801USA05191

PATIENT
  Sex: Male
  Weight: 81.63 kg

DRUGS (3)
  1. VIOXX [Suspect]
     Indication: BACK PAIN
     Dosage: 25 MG, QD
     Route: 048
     Dates: start: 20000905, end: 20031108
  2. VIOXX [Suspect]
     Dosage: 12.5 MG, UNK
     Route: 048
  3. FLOMAX (TAMSULOSIN HYDROCHLORIDE) [Concomitant]
     Indication: BENIGN PROSTATIC HYPERPLASIA
     Dosage: 0.8 MG, QD

REACTIONS (67)
  - Cardiac valve disease [Fatal]
  - Arrhythmia [Fatal]
  - Endocarditis [Fatal]
  - Arteriosclerosis coronary artery [Fatal]
  - Myocardial ischaemia [Fatal]
  - Coronary artery bypass [Unknown]
  - Colectomy [Unknown]
  - Aortic valve replacement [Unknown]
  - Endocarditis [Unknown]
  - Sudden cardiac death [Unknown]
  - Silent myocardial infarction [Unknown]
  - Cardiac murmur [Unknown]
  - Hypochromic anaemia [Unknown]
  - Aortic stenosis [Unknown]
  - Infusion site cellulitis [Unknown]
  - Sternitis [Unknown]
  - Anaemia [Unknown]
  - Adenocarcinoma of colon [Unknown]
  - Sepsis [Unknown]
  - Fall [Unknown]
  - Encephalopathy [Unknown]
  - Dementia [Unknown]
  - Renal failure chronic [Unknown]
  - Diabetes mellitus [Unknown]
  - Aortic valve incompetence [Unknown]
  - Sinus bradycardia [Unknown]
  - Myocardial infarction [Fatal]
  - Myocardial infarction [Unknown]
  - Atrial fibrillation [Unknown]
  - Atrial fibrillation [Unknown]
  - Gastritis erosive [Unknown]
  - Cardiac failure congestive [Fatal]
  - Cardiac failure congestive [Unknown]
  - Amnesia [Unknown]
  - Coronary artery disease [Unknown]
  - Paronychia [Unknown]
  - Ecchymosis [Unknown]
  - Cardiomegaly [Not Recovered/Not Resolved]
  - Arteriosclerosis [Not Recovered/Not Resolved]
  - Atrioventricular block first degree [Unknown]
  - Supraventricular extrasystoles [Unknown]
  - Pollakiuria [Unknown]
  - Sleep disorder [Unknown]
  - Appetite disorder [Unknown]
  - Cerebral atrophy [Unknown]
  - Spinal osteoarthritis [Unknown]
  - Mitral valve incompetence [Unknown]
  - Tricuspid valve incompetence [Unknown]
  - Cardiac aneurysm [Unknown]
  - Productive cough [Unknown]
  - Incontinence [Unknown]
  - Dyspnoea exertional [Unknown]
  - Eye pain [Unknown]
  - Dyspnoea [Unknown]
  - Pulmonary congestion [Not Recovered/Not Resolved]
  - Urinary retention [Unknown]
  - Urinary retention [Unknown]
  - Pain in extremity [Unknown]
  - Chest pain [Unknown]
  - Chest pain [Unknown]
  - Chest pain [Unknown]
  - Gastrointestinal haemorrhage [Unknown]
  - Headache [Unknown]
  - Heart rate irregular [Unknown]
  - Hypertension [Unknown]
  - Constipation [Unknown]
  - Fatigue [Unknown]
